FAERS Safety Report 12808221 (Version 3)
Quarter: 2016Q4

REPORT INFORMATION
  Report Type: Report from Study
  Country: US (occurrence: US)
  Receive Date: 20161004
  Receipt Date: 20161114
  Transmission Date: 20170207
  Serious: Yes (Other)
  Sender: FDA-Public Use
  Company Number: US-GILEAD-2016-0236059

PATIENT
  Age: 65 Year
  Sex: Male

DRUGS (1)
  1. LEDIPASVIR/SOFOSBUVIR [Suspect]
     Active Substance: LEDIPASVIR\SOFOSBUVIR
     Indication: HEPATITIS C
     Dosage: 1 DF, UNK
     Route: 048
     Dates: start: 20160912, end: 20161108

REACTIONS (8)
  - Thinking abnormal [Not Recovered/Not Resolved]
  - Wound [Recovering/Resolving]
  - Neuropathy peripheral [Not Recovered/Not Resolved]
  - Tendonitis [Unknown]
  - Disturbance in attention [Not Recovered/Not Resolved]
  - Cellulitis [Recovering/Resolving]
  - Oedema [Unknown]
  - Dizziness [Unknown]
